FAERS Safety Report 17367766 (Version 1)
Quarter: 2020Q1

REPORT INFORMATION
  Report Type: Spontaneous
  Country: US (occurrence: US)
  Receive Date: 20200204
  Receipt Date: 20200204
  Transmission Date: 20200409
  Serious: Yes (Other)
  Sender: FDA-Public Use
  Company Number: US-PROCTER_AND_GAMBLE-GS20010665

PATIENT

DRUGS (2)
  1. CREST 3D WHITE LUXE [Suspect]
     Active Substance: POTASSIUM NITRATE\SODIUM FLUORIDE
  2. CREST 3D WHITE [Suspect]
     Active Substance: SODIUM FLUORIDE
     Route: 002

REACTIONS (3)
  - Oral disorder [Unknown]
  - Tooth loss [Unknown]
  - Tooth fracture [Unknown]

NARRATIVE: CASE EVENT DATE: 20200124
